FAERS Safety Report 14806693 (Version 1)
Quarter: 2018Q2

REPORT INFORMATION
  Report Type: Spontaneous
  Country: US (occurrence: US)
  Receive Date: 20180402
  Receipt Date: 20180402
  Transmission Date: 20180711
  Serious: Yes (Disabling)
  Sender: FDA-Public Use
  Company Number: None

PATIENT
  Age: 40 Year
  Sex: Female

DRUGS (10)
  1. FIORICET PM [Concomitant]
  2. OXYCODONE/ACETAMINOPHEN 5-325 [Suspect]
     Active Substance: ACETAMINOPHEN\OXYCODONE HYDROCHLORIDE
     Indication: PAIN
     Dosage: ?          QUANTITY:.5 TABLET(S);?
     Route: 048
     Dates: start: 20180323, end: 20180401
  3. VITAMIN D [Concomitant]
     Active Substance: CHOLECALCIFEROL
  4. TYLENOL ARTHRITIS PAIN [Concomitant]
     Active Substance: ACETAMINOPHEN
  5. VENTOLIN [Concomitant]
     Active Substance: ALBUTEROL SULFATE
  6. FERRLICET W/PRE-MEDS [Concomitant]
  7. AZELISTINE [Concomitant]
  8. SYNTHROID [Concomitant]
     Active Substance: LEVOTHYROXINE SODIUM
  9. PREDNISONE. [Concomitant]
     Active Substance: PREDNISONE
  10. FLOVENT [Concomitant]
     Active Substance: FLUTICASONE PROPIONATE

REACTIONS (10)
  - Chromaturia [None]
  - Blood creatinine decreased [None]
  - Laboratory test abnormal [None]
  - Drug ineffective [None]
  - Blood urea decreased [None]
  - Product formulation issue [None]
  - Headache [None]
  - Flank pain [None]
  - Product substitution issue [None]
  - Nausea [None]

NARRATIVE: CASE EVENT DATE: 20180323
